FAERS Safety Report 9066757 (Version 1)
Quarter: 2013Q1

REPORT INFORMATION
  Report Type: Report from Study
  Country: US (occurrence: US)
  Receive Date: 20130131
  Receipt Date: 20130131
  Transmission Date: 20140127
  Serious: No
  Sender: FDA-Public Use
  Company Number: US-ABBOTT-12P-163-1007846-00

PATIENT
  Age: 51 Year
  Sex: Female

DRUGS (3)
  1. HUMIRA [Suspect]
     Indication: COLITIS ULCERATIVE
     Dates: start: 20121022, end: 20121022
  2. HUMIRA [Suspect]
     Dates: start: 20121105
  3. LIALDA [Concomitant]
     Indication: COLITIS
     Dosage: 4 TABLETS DAILY

REACTIONS (4)
  - Pruritus [Recovered/Resolved]
  - Injection site erythema [Recovered/Resolved]
  - Injection site pain [Recovered/Resolved with Sequelae]
  - Injection site reaction [Recovered/Resolved]
